FAERS Safety Report 9909711 (Version 3)
Quarter: 2014Q2

REPORT INFORMATION
  Report Type: Spontaneous
  Country: US (occurrence: US)
  Receive Date: 20140219
  Receipt Date: 20140421
  Transmission Date: 20141212
  Serious: No
  Sender: FDA-Public Use
  Company Number: US-PFIZER INC-2014042261

PATIENT
  Age: 69 Year
  Sex: Male
  Weight: 84 kg

DRUGS (2)
  1. LATANOPROST [Suspect]
     Indication: INTRAOCULAR PRESSURE INCREASED
     Dosage: 1 GTT, 1X/DAY (ONE DROP IN EACH EYE 1X/DAY)
     Dates: start: 2013
  2. CITALOPRAM [Concomitant]
     Dosage: 100 MG, 1X/DAY

REACTIONS (1)
  - Drug ineffective [Unknown]
